FAERS Safety Report 5478137-8 (Version None)
Quarter: 2007Q4

REPORT INFORMATION
  Report Type: 
  Country: None (occurrence: None)
  Receive Date: 20071005
  Receipt Date: 20061201
  Transmission Date: 20080405
  Serious: No
  Sender: FDA-Public Use
  Company Number: US-BRISTOL-MYERS SQUIBB COMPANY-13597901

PATIENT
  Age: 74 Year
  Sex: Male
  Weight: 88 kg

DRUGS (5)
  1. AVAPRO [Suspect]
     Route: 048
  2. ZOCOR [Concomitant]
  3. ISOSORBIDE DINITRATE [Concomitant]
  4. TOPROL-XL [Concomitant]
  5. ASPIRIN [Concomitant]

REACTIONS (1)
  - CONTUSION [None]
